FAERS Safety Report 7389076-X (Version None)
Quarter: 2011Q2

REPORT INFORMATION
  Report Type: 
  Country: None (occurrence: None)
  Receive Date: 20110401
  Receipt Date: 20110323
  Transmission Date: 20111010
  Serious: Yes (Hospitalization, Other)
  Sender: FDA-Public Use
  Company Number: US-ROCHE-747129

PATIENT
  Sex: Female
  Weight: 67.6 kg

DRUGS (12)
  1. RIBASPHERE [Suspect]
     Indication: HEPATITIS C
     Dosage: DIVIDED DOSES
     Route: 065
     Dates: start: 20101201
  2. ASCORBIC ACID [Concomitant]
  3. COPEGUS [Suspect]
     Indication: HEPATITIS C
     Route: 048
  4. CYMBALTA [Concomitant]
  5. VICODIN [Concomitant]
  6. IMITREX [Concomitant]
     Route: 065
  7. PEGASYS [Suspect]
     Indication: HEPATITIS C
     Route: 065
     Dates: start: 20101201
  8. ACIDOPHILUS [Concomitant]
  9. AMBIEN [Concomitant]
  10. FIORICET [Concomitant]
  11. ESTRADIOL [Concomitant]
  12. ZYRTEC [Concomitant]

REACTIONS (19)
  - NAUSEA [None]
  - VOMITING [None]
  - HEADACHE [None]
  - EYELIDS PRURITUS [None]
  - SKIN WARM [None]
  - ALOPECIA [None]
  - DIZZINESS [None]
  - RASH VESICULAR [None]
  - DEHYDRATION [None]
  - DEAFNESS [None]
  - GINGIVAL BLEEDING [None]
  - LOSS OF CONSCIOUSNESS [None]
  - RENAL PAIN [None]
  - DYSPNOEA [None]
  - PRURITUS [None]
  - JOINT SWELLING [None]
  - INSOMNIA [None]
  - ASTHENIA [None]
  - TINNITUS [None]
